FAERS Safety Report 16131895 (Version 1)
Quarter: 2019Q1

REPORT INFORMATION
  Report Type: Spontaneous
  Country: GB (occurrence: GB)
  Receive Date: 20190329
  Receipt Date: 20190329
  Transmission Date: 20190418
  Serious: Yes (Hospitalization)
  Sender: FDA-Public Use
  Company Number: GB-HETERO CORPORATE-HET2019GB00359

PATIENT
  Sex: Male

DRUGS (3)
  1. ARIPIPRAZOLE. [Suspect]
     Active Substance: ARIPIPRAZOLE
     Indication: PRODUCT USED FOR UNKNOWN INDICATION
     Dosage: UNK
     Route: 065
     Dates: start: 201902
  2. CLOZARIL [Concomitant]
     Active Substance: CLOZAPINE
     Indication: SCHIZOPHRENIA
     Dosage: 15 MG, QD
     Route: 048
     Dates: start: 20020712
  3. CLOZARIL [Concomitant]
     Active Substance: CLOZAPINE
     Dosage: 15 MG, QD
     Route: 048
     Dates: end: 20190220

REACTIONS (6)
  - Tachycardia [Unknown]
  - Malaise [Unknown]
  - Hypertension [Unknown]
  - Hyperlipidaemia [Unknown]
  - Hospitalisation [Unknown]
  - Blood test abnormal [Unknown]

NARRATIVE: CASE EVENT DATE: 2019
